FAERS Safety Report 10853176 (Version 3)
Quarter: 2015Q1

REPORT INFORMATION
  Report Type: Spontaneous
  Country: US (occurrence: US)
  Receive Date: 20150223
  Receipt Date: 20150225
  Transmission Date: 20150721
  Serious: No
  Sender: FDA-Public Use
  Company Number: US-009507513-1502USA006205

PATIENT
  Age: 31 Year
  Sex: Female
  Weight: 72.11 kg

DRUGS (1)
  1. NEXPLANON [Suspect]
     Active Substance: ETONOGESTREL
     Dosage: UNKNOWN
     Route: 059
     Dates: start: 20141007, end: 20141112

REACTIONS (3)
  - Device breakage [Recovered/Resolved]
  - Unintended pregnancy [Unknown]
  - Product quality issue [Unknown]

NARRATIVE: CASE EVENT DATE: 20150114
